FAERS Safety Report 18341529 (Version 2)
Quarter: 2020Q4

REPORT INFORMATION
  Report Type: Spontaneous
  Country: GB (occurrence: GB)
  Receive Date: 20201004
  Receipt Date: 20201016
  Transmission Date: 20210113
  Serious: Yes (Hospitalization, Other)
  Sender: FDA-Public Use
  Company Number: GB-SA-2020SA271651

PATIENT

DRUGS (2)
  1. DOCETAXEL. [Suspect]
     Active Substance: DOCETAXEL
     Indication: PROSTATE CANCER METASTATIC
     Dosage: UNK UNK, QCY
     Dates: end: 2016
  2. DOCETAXEL. [Suspect]
     Active Substance: DOCETAXEL
     Dosage: UNK UNK, QCY
     Dates: start: 2016, end: 2016

REACTIONS (12)
  - Skin lesion [Recovering/Resolving]
  - Blood blister [Recovering/Resolving]
  - Myelosuppression [Unknown]
  - Pancytopenia [Unknown]
  - Malaise [Unknown]
  - Haemoglobin decreased [Unknown]
  - Pyrexia [Recovering/Resolving]
  - Hypoaesthesia [Unknown]
  - Cutaneous nocardiosis [Recovering/Resolving]
  - Platelet count decreased [Unknown]
  - Neutrophil count decreased [Unknown]
  - Muscular weakness [Unknown]
